FAERS Safety Report 9355429 (Version 4)
Quarter: 2013Q3

REPORT INFORMATION
  Report Type: Spontaneous
  Country: US (occurrence: US)
  Receive Date: 20130619
  Receipt Date: 20130708
  Transmission Date: 20140515
  Serious: Yes (Other)
  Sender: FDA-Public Use
  Company Number: US-JNJFOC-20130609235

PATIENT
  Sex: 0

DRUGS (8)
  1. INFLIXIMAB, RECOMBINANT [Suspect]
     Indication: CROHN^S DISEASE
     Route: 042
  2. CERTOLIZUMAB PEGOL [Suspect]
     Indication: CROHN^S DISEASE
     Dosage: 0, 2 AND 4 WEEKS
     Route: 058
  3. CERTOLIZUMAB PEGOL [Suspect]
     Indication: CROHN^S DISEASE
     Route: 058
  4. MESALAMINE [Concomitant]
  5. ANTIBIOTICS [Concomitant]
     Route: 065
  6. AZATHIOPRINE [Concomitant]
     Route: 065
  7. 6-MERCAPTOPURINE [Concomitant]
     Route: 065
  8. METHOTREXATE [Concomitant]
     Route: 065

REACTIONS (3)
  - Squamous cell carcinoma of skin [Unknown]
  - Hypersensitivity [Unknown]
  - Drug effect decreased [Unknown]
